FAERS Safety Report 7096725-2 (Version None)
Quarter: 2010Q4

REPORT INFORMATION
  Report Type: 
  Country: None (occurrence: None)
  Receive Date: 20101111
  Receipt Date: 20091005
  Transmission Date: 20110411
  Serious: No
  Sender: FDA-Public Use
  Company Number: US-KINGPHARMUSA00001-K200901235

PATIENT
  Sex: Male

DRUGS (6)
  1. AVINZA [Suspect]
     Indication: BACK PAIN
     Dosage: 90 MG, QD
     Route: 048
     Dates: start: 20070101
  2. HYDROCODONE [Concomitant]
     Indication: BREAKTHROUGH PAIN
     Dosage: ^500^ MG, UNK
  3. FLUTICASONE PROPIONATE [Concomitant]
     Indication: SINUS DISORDER
     Dosage: UNK
  4. GABAPENTIN [Concomitant]
     Dosage: 300 MG, PRN
  5. VITAMINS [Concomitant]
     Dosage: UNK
  6. ADVIL PM [Concomitant]
     Dosage: UNK

REACTIONS (4)
  - DRUG INEFFECTIVE [None]
  - FORMICATION [None]
  - PSYCHOMOTOR HYPERACTIVITY [None]
  - WITHDRAWAL SYNDROME [None]
